FAERS Safety Report 17349727 (Version 3)
Quarter: 2020Q2

REPORT INFORMATION
  Report Type: Report from Study
  Country: US (occurrence: US)
  Receive Date: 20200130
  Receipt Date: 20200415
  Transmission Date: 20200713
  Serious: Yes (Other)
  Sender: FDA-Public Use
  Company Number: US-PFIZER INC-2019525229

PATIENT
  Age: 54 Year
  Sex: Female

DRUGS (1)
  1. IBRANCE [Suspect]
     Active Substance: PALBOCICLIB
     Indication: BREAST CANCER
     Dosage: 125 MG, CYCLIC (DAILY, 21 DAYS ON, 7 DAYS OFF)
     Route: 048
     Dates: start: 20191016

REACTIONS (7)
  - Bone marrow failure [Unknown]
  - Pyrexia [Unknown]
  - Oesophageal disorder [Unknown]
  - White blood cell count decreased [Unknown]
  - Gastrointestinal sounds abnormal [Unknown]
  - Alopecia [Unknown]
  - Arthralgia [Unknown]
